FAERS Safety Report 17985333 (Version 2)
Quarter: 2020Q3

REPORT INFORMATION
  Report Type: Spontaneous
  Country: US (occurrence: US)
  Receive Date: 20200706
  Receipt Date: 20200909
  Transmission Date: 20201103
  Serious: No
  Sender: FDA-Public Use
  Company Number: US-BRISTOL-MYERS SQUIBB COMPANY-BMS-2020-052516

PATIENT
  Sex: Female

DRUGS (1)
  1. ORENCIA [Suspect]
     Active Substance: ABATACEPT
     Indication: GIANT CELL ARTERITIS
     Dosage: 125 MILLIGRAM, QWK
     Route: 058
     Dates: start: 201901

REACTIONS (3)
  - Animal bite [Unknown]
  - Intentional product use issue [Unknown]
  - Infection [Unknown]
